FAERS Safety Report 21039441 (Version 5)
Quarter: 2022Q3

REPORT INFORMATION
  Report Type: Spontaneous
  Country: US (occurrence: US)
  Receive Date: 20220704
  Receipt Date: 20220905
  Transmission Date: 20221026
  Serious: Yes (Hospitalization, Other)
  Sender: FDA-Public Use
  Company Number: US-BEH-2022147117

PATIENT
  Age: 29 Year
  Sex: Female

DRUGS (4)
  1. HUMATE-P [Suspect]
     Active Substance: HUMAN COAGULATION FACTOR VIII/VON WILLEBRAND FACTOR COMPLEX
     Indication: Von Willebrand^s disease
     Dosage: 3000 INTERNATIONAL UNIT, PRN
     Route: 042
     Dates: start: 20130104
  2. HUMATE-P [Suspect]
     Active Substance: HUMAN COAGULATION FACTOR VIII/VON WILLEBRAND FACTOR COMPLEX
     Dosage: UNK
     Route: 042
     Dates: start: 20220624
  3. HUMATE-P [Suspect]
     Active Substance: HUMAN COAGULATION FACTOR VIII/VON WILLEBRAND FACTOR COMPLEX
     Dosage: UNK
     Route: 065
     Dates: start: 20220624
  4. HUMATE-P [Suspect]
     Active Substance: HUMAN COAGULATION FACTOR VIII/VON WILLEBRAND FACTOR COMPLEX
     Dosage: UNK
     Route: 065
     Dates: start: 20220624

REACTIONS (10)
  - Hypersensitivity [Unknown]
  - Pruritus [Unknown]
  - Injection site swelling [Unknown]
  - Injection site pruritus [Unknown]
  - Pharyngeal swelling [Unknown]
  - Vomiting [Unknown]
  - Dermal cyst [Unknown]
  - Heavy menstrual bleeding [Unknown]
  - No adverse event [Unknown]
  - Liquid product physical issue [Unknown]

NARRATIVE: CASE EVENT DATE: 20220624
